FAERS Safety Report 6825243-9 (Version None)
Quarter: 2010Q3

REPORT INFORMATION
  Report Type: 
  Country: None (occurrence: None)
  Receive Date: 20100708
  Receipt Date: 20061220
  Transmission Date: 20110219
  Serious: No
  Sender: FDA-Public Use
  Company Number: US-PFIZER INC-2007001177

PATIENT
  Sex: Female
  Weight: 67.13 kg

DRUGS (4)
  1. CHANTIX [Suspect]
     Indication: SMOKING CESSATION THERAPY
     Dates: start: 20061201
  2. OMEPRAZOLE [Interacting]
     Indication: NAUSEA
  3. ZOLOFT [Concomitant]
  4. ALBUTEROL [Concomitant]
     Route: 055

REACTIONS (4)
  - ABDOMINAL DISTENSION [None]
  - CONSTIPATION [None]
  - DRUG INTERACTION [None]
  - NAUSEA [None]
